FAERS Safety Report 20725062 (Version 2)
Quarter: 2023Q2

REPORT INFORMATION
  Report Type: Report from Study
  Country: US (occurrence: US)
  Receive Date: 20220419
  Receipt Date: 20230519
  Transmission Date: 20230721
  Serious: Yes (Other)
  Sender: FDA-Public Use
  Company Number: US-UCBSA-2022021445

PATIENT
  Sex: Female

DRUGS (2)
  1. LACOSAMIDE [Suspect]
     Active Substance: LACOSAMIDE
     Indication: Seizure
     Dosage: 200MG AM AND 400MG PM
  2. LACOSAMIDE [Suspect]
     Active Substance: LACOSAMIDE
     Dosage: 200 MILLIGRAM, 3X/DAY (TID)

REACTIONS (6)
  - Seasonal allergy [Not Recovered/Not Resolved]
  - Malaise [Unknown]
  - Fall [Unknown]
  - Memory impairment [Unknown]
  - Overdose [Unknown]
  - Product use issue [Unknown]
